FAERS Safety Report 16432052 (Version 2)
Quarter: 2020Q2

REPORT INFORMATION
  Report Type: Spontaneous
  Country: US (occurrence: US)
  Receive Date: 20190614
  Receipt Date: 20200415
  Transmission Date: 20200713
  Serious: Yes (Other)
  Sender: FDA-Public Use
  Company Number: US-GILEAD-2019-0412940

PATIENT
  Age: 60 Year
  Sex: Male

DRUGS (26)
  1. METOPROLOL TARTRATE. [Concomitant]
     Active Substance: METOPROLOL TARTRATE
  2. NYSTATIN. [Concomitant]
     Active Substance: NYSTATIN
  3. ALBUTEROL SULFATE. [Concomitant]
     Active Substance: ALBUTEROL SULFATE
  4. STRIBILD [Suspect]
     Active Substance: COBICISTAT\ELVITEGRAVIR\EMTRICITABINE\TENOFOVIR DISOPROXIL FUMARATE
     Indication: HIV INFECTION
     Dosage: UNK
     Route: 065
     Dates: start: 20160209, end: 20160517
  5. BIKTARVY [Concomitant]
     Active Substance: BICTEGRAVIR SODIUM\EMTRICITABINE\TENOFOVIR ALAFENAMIDE FUMARATE
  6. GENVOYA [Concomitant]
     Active Substance: COBICISTAT\ELVITEGRAVIR\EMTRICITABINE\TENOFOVIR ALAFENAMIDE FUMARATE
  7. LISINOPRIL. [Concomitant]
     Active Substance: LISINOPRIL
  8. PREDNISONE. [Concomitant]
     Active Substance: PREDNISONE
  9. ELIQUIS [Concomitant]
     Active Substance: APIXABAN
  10. BACTRIM [Concomitant]
     Active Substance: SULFAMETHOXAZOLE\TRIMETHOPRIM
  11. IPRATROPIUM BROMIDE AND ALBUTEROL SULFATE [Concomitant]
     Active Substance: ALBUTEROL SULFATE\IPRATROPIUM BROMIDE
  12. VIAGRA [Concomitant]
     Active Substance: SILDENAFIL CITRATE
  13. ATRIPLA [Suspect]
     Active Substance: EFAVIRENZ\EMTRICITABINE\TENOFOVIR DISOPROXIL FUMARATE
     Indication: HIV INFECTION
     Dosage: UNK
     Route: 048
     Dates: start: 20091201, end: 20160124
  14. PENICILLIN-VK [Concomitant]
     Active Substance: PENICILLIN V POTASSIUM
  15. ASPIRIN 81 [Concomitant]
     Active Substance: ASPIRIN
  16. LASIX [Concomitant]
     Active Substance: FUROSEMIDE
  17. INSULIN LISPRO [Concomitant]
     Active Substance: INSULIN LISPRO
  18. XANAX [Concomitant]
     Active Substance: ALPRAZOLAM
  19. CEPHALEXIN [CEFALEXIN] [Concomitant]
     Active Substance: CEPHALEXIN
  20. FLUCONAZOLE. [Concomitant]
     Active Substance: FLUCONAZOLE
  21. LEVOFLOXACIN. [Concomitant]
     Active Substance: LEVOFLOXACIN
  22. ACETYLCYSTEINE. [Concomitant]
     Active Substance: ACETYLCYSTEINE
  23. ADVAIR HFA [Concomitant]
     Active Substance: FLUTICASONE PROPIONATE\SALMETEROL XINAFOATE
  24. DOXYCYCLINE. [Concomitant]
     Active Substance: DOXYCYCLINE
  25. SYMBICORT [Concomitant]
     Active Substance: BUDESONIDE\FORMOTEROL FUMARATE DIHYDRATE
  26. PROTONIX [OMEPRAZOLE] [Concomitant]
     Active Substance: OMEPRAZOLE

REACTIONS (8)
  - Anxiety [Not Recovered/Not Resolved]
  - Anhedonia [Not Recovered/Not Resolved]
  - Renal failure [Not Recovered/Not Resolved]
  - Economic problem [Not Recovered/Not Resolved]
  - Pain [Not Recovered/Not Resolved]
  - End stage renal disease [Not Recovered/Not Resolved]
  - Chronic kidney disease [Not Recovered/Not Resolved]
  - Emotional distress [Not Recovered/Not Resolved]

NARRATIVE: CASE EVENT DATE: 201802
